FAERS Safety Report 16366149 (Version 1)
Quarter: 2019Q3

REPORT INFORMATION
  Report Type: Spontaneous
  Country: US (occurrence: US)
  Receive Date: 20190528
  Receipt Date: 20190528
  Transmission Date: 20191004
  Serious: Yes (Life-Threatening)
  Sender: FDA-Public Use
  Company Number: None

PATIENT
  Age: 47 Year
  Sex: Female
  Weight: 54 kg

DRUGS (12)
  1. ACETAMINOPHEN/CODIENE #3 [Concomitant]
  2. LORAZEPAM (ATIVAN); [Concomitant]
  3. SYNTHROID (LEVOTHROXINE), [Concomitant]
  4. HYDROCHLOROTHIAZIDE (HCTZ); [Concomitant]
  5. METHACARBAMOL (ROBAXIN), [Concomitant]
  6. CELECOXIB (CELEBREX), [Concomitant]
  7. VOLTAREN GEL (DICLOFENAC GEL) [Concomitant]
  8. ESCITALOPRAM (LEXAPRO); [Concomitant]
  9. METHYPHENDATE (CONCERTA), [Concomitant]
  10. SUCRETS [Suspect]
     Active Substance: DYCLONINE HYDROCHLORIDE\HEXYLRESORCINOL\MENTHOL\PECTIN
     Indication: OROPHARYNGEAL PAIN
     Dosage: ?          OTHER FREQUENCY:10 LOZENGES/DAY;?
     Route: 048
     Dates: start: 20090101, end: 20090101
  11. PRAVASTATIN (PRAVASTID [Concomitant]
  12. LAMOTRIGINE (LAMICTAL); [Concomitant]

REACTIONS (3)
  - Pharyngeal swelling [None]
  - Urticaria [None]
  - Anxiety [None]

NARRATIVE: CASE EVENT DATE: 20190101
